FAERS Safety Report 10583634 (Version 2)
Quarter: 2014Q4

REPORT INFORMATION
  Report Type: Report from Study
  Country: AR (occurrence: AR)
  Receive Date: 20141114
  Receipt Date: 20141203
  Transmission Date: 20150529
  Serious: Yes (Death, Hospitalization)
  Sender: FDA-Public Use
  Company Number: PHHY2014AR147912

PATIENT
  Sex: Male

DRUGS (5)
  1. SEEBRI BREEZHALER [Suspect]
     Active Substance: GLYCOPYRROLATE
     Indication: EMPHYSEMA
  2. ONBREZ [Suspect]
     Active Substance: INDACATEROL
     Indication: EMPHYSEMA
  3. SEEBRI BREEZHALER [Suspect]
     Active Substance: GLYCOPYRROLATE
     Indication: CHRONIC OBSTRUCTIVE PULMONARY DISEASE
     Dosage: 1 DF, QD
     Route: 055
  4. ONBREZ [Suspect]
     Active Substance: INDACATEROL
     Indication: CHRONIC OBSTRUCTIVE PULMONARY DISEASE
     Dosage: 2 DF, QD
     Route: 055
  5. ENALAPRIL [Concomitant]
     Active Substance: ENALAPRIL
     Indication: BLOOD PRESSURE
     Route: 048

REACTIONS (1)
  - General physical health deterioration [Fatal]
